FAERS Safety Report 8562536-1 (Version None)
Quarter: 2012Q3

REPORT INFORMATION
  Report Type: 
  Country: None (occurrence: None)
  Receive Date: 20120802
  Receipt Date: 20120706
  Transmission Date: 20120928
  Serious: No
  Sender: FDA-Public Use
  Company Number: US-AMGEN-USASP2012041797

PATIENT
  Sex: Female

DRUGS (2)
  1. METHOTREXATE [Concomitant]
     Dosage: UNK
  2. ENBREL [Suspect]
     Indication: RHEUMATOID ARTHRITIS
     Dosage: 50 MG, QWK
     Dates: start: 20071209

REACTIONS (5)
  - NASOPHARYNGITIS [None]
  - INCORRECT STORAGE OF DRUG [None]
  - OROPHARYNGEAL PAIN [None]
  - RHEUMATOID ARTHRITIS [None]
  - PYREXIA [None]
